FAERS Safety Report 9543457 (Version 1)
Quarter: 2013Q2

REPORT INFORMATION
  Report Type: Spontaneous
  Country: US (occurrence: None)
  Receive Date: 20130524
  Receipt Date: 20130524
  Transmission Date: 20140414
  Serious: Yes (Other)
  Sender: FDA-Public Use
  Company Number: PHEH2013US001803

PATIENT
  Age: 22 Year
  Sex: Female

DRUGS (1)
  1. GILENYA (FINGOLIMOD) CAPSULE [Suspect]
     Route: 048
     Dates: start: 201103

REACTIONS (3)
  - Hypoaesthesia [None]
  - Paraesthesia [None]
  - Heart rate decreased [None]
